FAERS Safety Report 13063776 (Version 1)
Quarter: 2016Q4

REPORT INFORMATION
  Report Type: Spontaneous
  Country: US (occurrence: US)
  Receive Date: 20161227
  Receipt Date: 20161227
  Transmission Date: 20170207
  Serious: No
  Sender: FDA-Public Use
  Company Number: US-PFIZER INC-2015035171

PATIENT
  Age: 74 Year
  Sex: Female

DRUGS (16)
  1. CEFUROXIME. [Suspect]
     Active Substance: CEFUROXIME
  2. ERYTHROMYCIN. [Suspect]
     Active Substance: ERYTHROMYCIN
  3. LEVAQUIN [Suspect]
     Active Substance: LEVOFLOXACIN
     Dosage: UNK
  4. BIAXIN [Suspect]
     Active Substance: CLARITHROMYCIN
     Dosage: UNK
  5. BACTRIM [Suspect]
     Active Substance: SULFAMETHOXAZOLE\TRIMETHOPRIM
  6. LODINE [Suspect]
     Active Substance: ETODOLAC
  7. E-MYCIN [Suspect]
     Active Substance: ERYTHROMYCIN
  8. CORTISONE [Suspect]
     Active Substance: CORTISONE\HYDROCORTISONE
  9. DOXYCYCLINE HYCLATE. [Suspect]
     Active Substance: DOXYCYCLINE HYCLATE
  10. CODEINE [Suspect]
     Active Substance: CODEINE
     Dosage: UNK
  11. CARBAMAZEPINE. [Suspect]
     Active Substance: CARBAMAZEPINE
  12. CLARITHROMYCIN. [Suspect]
     Active Substance: CLARITHROMYCIN
  13. PREDNISONE. [Suspect]
     Active Substance: PREDNISONE
  14. DEXILANT [Suspect]
     Active Substance: DEXLANSOPRAZOLE
     Dosage: UNK
  15. AMOXILIN [Suspect]
     Active Substance: AMOXICILLIN
  16. DARVOCET [Suspect]
     Active Substance: ACETAMINOPHEN\PROPOXYPHENE HYDROCHLORIDE

REACTIONS (3)
  - Rash [Unknown]
  - Drug hypersensitivity [Unknown]
  - Acne [Unknown]
